FAERS Safety Report 8397934-2 (Version None)
Quarter: 2012Q2

REPORT INFORMATION
  Report Type: 
  Country: None (occurrence: None)
  Receive Date: 20120531
  Receipt Date: 20120529
  Transmission Date: 20120825
  Serious: Yes (Death, Hospitalization, Other)
  Sender: FDA-Public Use
  Company Number: PHEH2005US10697

PATIENT
  Sex: Female
  Weight: 61.678 kg

DRUGS (11)
  1. TYLENOL [Concomitant]
  2. CALCIUM [Concomitant]
  3. ZOMETA [Suspect]
     Indication: LUNG CANCER METASTATIC
     Dosage: 4 MG, QMO
     Route: 042
     Dates: start: 20011101, end: 20031101
  4. CLONAZEPAM [Concomitant]
  5. ALBUTEROL [Concomitant]
  6. LEXAPRO [Concomitant]
  7. FASLODEX [Concomitant]
     Route: 030
  8. TAMOXIFEN CITRATE [Concomitant]
     Dosage: 20 MG, QD
  9. OXYCODONE HCL [Concomitant]
  10. DEPAKOTE [Concomitant]
  11. AREDIA [Suspect]
     Indication: LUNG CANCER METASTATIC
     Dosage: 90 MG, QMO
     Route: 042
     Dates: start: 20000401, end: 20011001

REACTIONS (44)
  - TOOTH FRACTURE [None]
  - SENSITIVITY OF TEETH [None]
  - TOOTH DISORDER [None]
  - JAW DISORDER [None]
  - SUBMANDIBULAR MASS [None]
  - METASTATIC NEOPLASM [None]
  - MENTAL STATUS CHANGES [None]
  - DEPRESSION [None]
  - ARTHRALGIA [None]
  - METASTASES TO BONE [None]
  - FALL [None]
  - IMPAIRED HEALING [None]
  - ABSCESS JAW [None]
  - FATIGUE [None]
  - OSTEONECROSIS OF JAW [None]
  - URINARY TRACT INFECTION [None]
  - OSTEOPOROSIS [None]
  - OSTEOMYELITIS [None]
  - APHTHOUS STOMATITIS [None]
  - CYST [None]
  - BONE DISORDER [None]
  - GINGIVAL ULCERATION [None]
  - OSTEOARTHRITIS [None]
  - NECK MASS [None]
  - SUTURE RELATED COMPLICATION [None]
  - CELLULITIS [None]
  - PAIN IN JAW [None]
  - ORAL DISORDER [None]
  - ACTINOMYCOSIS [None]
  - ANXIETY [None]
  - ASTHMA [None]
  - ORAL INFECTION [None]
  - GINGIVAL ABSCESS [None]
  - SWELLING [None]
  - CULTURE TISSUE SPECIMEN POSITIVE [None]
  - METASTASES TO CENTRAL NERVOUS SYSTEM [None]
  - DISEASE PROGRESSION [None]
  - TREMOR [None]
  - DEATH [None]
  - MANDIBULAR PROSTHESIS USER [None]
  - BRONCHITIS CHRONIC [None]
  - PAIN [None]
  - ORTHOSTATIC HYPOTENSION [None]
  - DECREASED APPETITE [None]
